FAERS Safety Report 17814124 (Version 4)
Quarter: 2020Q3

REPORT INFORMATION
  Report Type: Report from Study
  Country: None (occurrence: US)
  Receive Date: 20200522
  Receipt Date: 20200828
  Transmission Date: 20201102
  Serious: Yes (Other)
  Sender: FDA-Public Use
  Company Number: US-ABBVIE-20K-163-3273866-00

PATIENT
  Age: 62 Year
  Sex: Male
  Weight: 68.55 kg

DRUGS (5)
  1. HUMIRA [Suspect]
     Active Substance: ADALIMUMAB
     Indication: PSORIASIS
     Route: 058
  2. HUMIRA [Suspect]
     Active Substance: ADALIMUMAB
     Indication: RHEUMATOID ARTHRITIS
     Route: 058
     Dates: start: 201507
  3. METHOTREXATE. [Concomitant]
     Active Substance: METHOTREXATE
     Indication: RHEUMATOID ARTHRITIS
  4. HUMIRA [Suspect]
     Active Substance: ADALIMUMAB
     Indication: RHEUMATOID ARTHRITIS
     Route: 058
     Dates: start: 2016
  5. HUMIRA [Suspect]
     Active Substance: ADALIMUMAB
     Indication: PSORIATIC ARTHROPATHY

REACTIONS (16)
  - Exostosis [Recovered/Resolved]
  - Medical device removal [Recovered/Resolved]
  - Pain [Recovered/Resolved]
  - Arthralgia [Recovered/Resolved]
  - Limb mass [Recovered/Resolved]
  - Haemorrhage [Recovered/Resolved]
  - Postoperative adhesion [Unknown]
  - Tendonitis [Recovering/Resolving]
  - Insomnia [Unknown]
  - Tendonitis [Recovering/Resolving]
  - Arthralgia [Recovering/Resolving]
  - Tendon injury [Recovering/Resolving]
  - Musculoskeletal discomfort [Recovering/Resolving]
  - Calcinosis [Recovered/Resolved]
  - Osteoarthritis [Not Recovered/Not Resolved]
  - Tendon disorder [Recovering/Resolving]

NARRATIVE: CASE EVENT DATE: 2019
